FAERS Safety Report 8486161-6 (Version None)
Quarter: 2012Q3

REPORT INFORMATION
  Report Type: 
  Country: None (occurrence: None)
  Receive Date: 20120703
  Receipt Date: 20120628
  Transmission Date: 20120928
  Serious: Yes (Other)
  Sender: FDA-Public Use
  Company Number: AU-PFIZER INC-2012155168

PATIENT
  Age: 40 Year
  Sex: Male

DRUGS (1)
  1. CADUET [Suspect]
     Dosage: 5MG/40MG, UNK
     Dates: start: 20070101

REACTIONS (3)
  - AGGRESSION [None]
  - DEPRESSION [None]
  - MOOD ALTERED [None]
